FAERS Safety Report 20333052 (Version 1)
Quarter: 2022Q1

REPORT INFORMATION
  Report Type: Spontaneous
  Country: NO (occurrence: NO)
  Receive Date: 20220113
  Receipt Date: 20220113
  Transmission Date: 20220423
  Serious: Yes (Death)
  Sender: FDA-Public Use
  Company Number: NO-NALPROPION PHARMACEUTICALS INC.-NO-2022CUR000015

PATIENT

DRUGS (8)
  1. BUPROPION HYDROCHLORIDE\NALTREXONE HYDROCHLORIDE [Suspect]
     Active Substance: BUPROPION HYDROCHLORIDE\NALTREXONE HYDROCHLORIDE
     Indication: Obesity
     Dosage: 1X1 FOR ONE WEEK
     Route: 048
     Dates: start: 20211126, end: 202112
  2. BUPROPION HYDROCHLORIDE\NALTREXONE HYDROCHLORIDE [Suspect]
     Active Substance: BUPROPION HYDROCHLORIDE\NALTREXONE HYDROCHLORIDE
     Dosage: 1X2 FOR ONE WEEK
     Route: 048
     Dates: start: 202112, end: 202112
  3. BUPROPION HYDROCHLORIDE\NALTREXONE HYDROCHLORIDE [Suspect]
     Active Substance: BUPROPION HYDROCHLORIDE\NALTREXONE HYDROCHLORIDE
     Dosage: 2+1 FOR ONE WEEK
     Route: 048
     Dates: start: 202112, end: 202112
  4. BUPROPION HYDROCHLORIDE\NALTREXONE HYDROCHLORIDE [Suspect]
     Active Substance: BUPROPION HYDROCHLORIDE\NALTREXONE HYDROCHLORIDE
     Dosage: 2X2
     Route: 048
     Dates: start: 202112, end: 20211216
  5. PANTOPRAZOLE SODIUM [Concomitant]
     Active Substance: PANTOPRAZOLE SODIUM
     Indication: Gastrooesophageal reflux disease
     Dosage: 1 TABLET DAILY
     Route: 048
     Dates: start: 20201120
  6. PANTOPRAZOLE SODIUM [Concomitant]
     Active Substance: PANTOPRAZOLE SODIUM
     Indication: Dyspepsia
  7. TITRALAC [CALCIUM CARBONATE] [Concomitant]
     Indication: Gastrooesophageal reflux disease
     Dosage: 1-2 TABLETS WHEN NEEDED.
     Route: 048
  8. TITRALAC [CALCIUM CARBONATE] [Concomitant]
     Indication: Dyspepsia

REACTIONS (7)
  - Dyspnoea [Fatal]
  - Pulmonary oedema [Fatal]
  - Pallor [Fatal]
  - COVID-19 [Fatal]
  - Right ventricular dilatation [Fatal]
  - Liver disorder [Fatal]
  - Fatigue [Unknown]

NARRATIVE: CASE EVENT DATE: 20211201
